FAERS Safety Report 14049437 (Version 1)
Quarter: 2017Q4

REPORT INFORMATION
  Report Type: Report from Study
  Country: US (occurrence: US)
  Receive Date: 20171005
  Receipt Date: 20171005
  Transmission Date: 20180321
  Serious: No
  Sender: FDA-Public Use
  Company Number: US-AMGEN-USASL2016165666

PATIENT
  Age: 63 Year
  Sex: Female
  Weight: 54.88 kg

DRUGS (6)
  1. NORCO [Concomitant]
     Active Substance: ACETAMINOPHEN\HYDROCODONE BITARTRATE
  2. CALCITONIN [Concomitant]
     Active Substance: CALCITONIN
  3. FENTANYL. [Concomitant]
     Active Substance: FENTANYL
  4. PROLIA [Suspect]
     Active Substance: DENOSUMAB
     Indication: OSTEOPOROSIS
  5. TRAMADOL. [Concomitant]
     Active Substance: TRAMADOL
  6. PROLIA [Suspect]
     Active Substance: DENOSUMAB
     Indication: SPINAL FRACTURE
     Dosage: UNK
     Route: 065

REACTIONS (1)
  - Off label use [Unknown]
